FAERS Safety Report 11864047 (Version 3)
Quarter: 2016Q1

REPORT INFORMATION
  Report Type: Spontaneous
  Country: JP (occurrence: JP)
  Receive Date: 20151223
  Receipt Date: 20160112
  Transmission Date: 20160526
  Serious: Yes (Other)
  Sender: FDA-Public Use
  Company Number: JP-PFIZER INC-2015460360

PATIENT
  Age: 7 Decade
  Sex: Male

DRUGS (3)
  1. CERCINE [Concomitant]
     Active Substance: DIAZEPAM
     Indication: PROPHYLAXIS
     Dosage: 2 ML, UNK
     Route: 042
  2. FOSPHENYTOIN SODIUM. [Suspect]
     Active Substance: FOSPHENYTOIN SODIUM
     Indication: PROPHYLAXIS
     Dosage: 1125 MG, DAILY (ADMINISTRATION RATE WAS 30 MIN)
     Route: 042
     Dates: start: 20151102, end: 20151102
  3. FOSPHENYTOIN SODIUM. [Suspect]
     Active Substance: FOSPHENYTOIN SODIUM
     Dosage: 1125 MG, DAILY (ADMINISTRATION RATE WAS 60 MIN)
     Route: 042
     Dates: start: 20151103, end: 20151103

REACTIONS (3)
  - Sinus node dysfunction [Recovered/Resolved]
  - Sinus node dysfunction [Recovered/Resolved]
  - Blood pressure decreased [Unknown]

NARRATIVE: CASE EVENT DATE: 20151102
